FAERS Safety Report 10899971 (Version 3)
Quarter: 2015Q1

REPORT INFORMATION
  Report Type: Spontaneous
  Country: FR (occurrence: FR)
  Receive Date: 20150310
  Receipt Date: 20150323
  Transmission Date: 20150721
  Serious: Yes (Hospitalization)
  Sender: FDA-Public Use
  Company Number: FR-ROCHE-1549558

PATIENT
  Age: 71 Year
  Sex: Female

DRUGS (10)
  1. CEFTRIAXONE SODIUM. [Suspect]
     Active Substance: CEFTRIAXONE SODIUM
     Indication: BRONCHOPNEUMOPATHY
     Route: 042
     Dates: start: 20140210, end: 20140218
  2. LEDERFOLINE [Concomitant]
     Active Substance: LEUCOVORIN CALCIUM
  3. BACTRIM [Suspect]
     Active Substance: SULFAMETHOXAZOLE\TRIMETHOPRIM
     Indication: PNEUMOCYSTIS JIROVECII PNEUMONIA
     Dosage: 4 DF
     Route: 042
     Dates: start: 20150212, end: 20150219
  4. SOLU-MEDROL [Concomitant]
     Active Substance: METHYLPREDNISOLONE SODIUM SUCCINATE
  5. CALCIPARINE [Concomitant]
     Active Substance: HEPARIN CALCIUM
  6. TRIFLUCAN [Concomitant]
     Active Substance: FLUCONAZOLE
  7. INEXIUM [Concomitant]
     Active Substance: ESOMEPRAZOLE
  8. RITUXIMAB [Concomitant]
     Active Substance: RITUXIMAB
     Indication: AUTOIMMUNE HAEMOLYTIC ANAEMIA
     Dosage: LAST COURSE ON 15/DEC/2014
     Route: 065
  9. CORDARONE [Concomitant]
     Active Substance: AMIODARONE HYDROCHLORIDE
  10. ZOVIRAX [Concomitant]
     Active Substance: ACYCLOVIR

REACTIONS (1)
  - Pancytopenia [Recovered/Resolved]

NARRATIVE: CASE EVENT DATE: 20150217
